FAERS Safety Report 4701821-8 (Version None)
Quarter: 2005Q2

REPORT INFORMATION
  Report Type: 
  Country: None (occurrence: None)
  Receive Date: 20050627
  Receipt Date: 20050617
  Transmission Date: 20051028
  Serious: Yes (Hospitalization)
  Sender: FDA-Public Use
  Company Number: TPA2005A00691

PATIENT
  Sex: Male

DRUGS (1)
  1. PIOGLITAZONE HCL [Suspect]
     Dosage: PER ORAL
     Route: 048

REACTIONS (5)
  - ASTHENIA [None]
  - CELLULITIS [None]
  - HYPERHIDROSIS [None]
  - HYPOGLYCAEMIA [None]
  - PNEUMONIA [None]
